FAERS Safety Report 10676948 (Version 1)
Quarter: 2014Q4

REPORT INFORMATION
  Report Type: Spontaneous
  Country: US (occurrence: US)
  Receive Date: 20141226
  Receipt Date: 20141226
  Transmission Date: 20150529
  Serious: No
  Sender: FDA-Public Use
  Company Number: US-BAYER-2014-188072

PATIENT
  Sex: Female

DRUGS (3)
  1. MIDOL [Suspect]
     Active Substance: IBUPROFEN
     Dosage: UNK DF, UNK
  2. ALKA-SELTZER PLUS COLD FORMULA DAY/NIGHT EFFERVESCENT COMBI NIGHT [Suspect]
     Active Substance: ASPIRIN\CHLORPHENIRAMINE MALEATE\PHENYLPROPANOLAMINE
     Indication: NASOPHARYNGITIS
     Dosage: UNK DF, UNK
  3. ALKA-SELTZER PLUS DAY NON DROWSY COLD MEDICINE CITRUS [Suspect]
     Active Substance: ASPIRIN\DEXTROMETHORPHAN HYDROBROMIDE\PHENYLEPHRINE BITARTRATE
     Indication: NASOPHARYNGITIS
     Dosage: UNK DF, UNK

REACTIONS (1)
  - Drug screen positive [Unknown]
